FAERS Safety Report 18308319 (Version 1)
Quarter: 2020Q3

REPORT INFORMATION
  Report Type: Report from Study
  Country: AU (occurrence: AU)
  Receive Date: 20200924
  Receipt Date: 20200924
  Transmission Date: 20201103
  Serious: Yes (Other)
  Sender: FDA-Public Use
  Company Number: AU-REGENERON PHARMACEUTICALS, INC.-2020-78199

PATIENT

DRUGS (1)
  1. EYLEA [Suspect]
     Active Substance: AFLIBERCEPT
     Indication: NEOVASCULAR AGE-RELATED MACULAR DEGENERATION
     Dosage: RIGHT EYE INJECTIONS EVERY TWO MONTHS; TOTAL NUMBER OF DOSES UNKNOWN
     Route: 031
     Dates: start: 20191101

REACTIONS (2)
  - Blindness transient [Recovered/Resolved]
  - Visual impairment [Unknown]
